FAERS Safety Report 4590939-9 (Version None)
Quarter: 2005Q1

REPORT INFORMATION
  Report Type: 
  Country: None (occurrence: None)
  Receive Date: 20050222
  Receipt Date: 20050222
  Transmission Date: 20050727
  Serious: Yes (Life-Threatening, Hospitalization)
  Sender: FDA-Public Use
  Company Number: None

PATIENT
  Age: 74 Year
  Sex: Female
  Weight: 80.9 kg

DRUGS (3)
  1. ENALAPRIL 10 MG [Suspect]
     Indication: CEREBROVASCULAR ACCIDENT
     Dosage: 10 MG ORAL
     Route: 048
     Dates: start: 20041215, end: 20050217
  2. ENALAPRIL 10 MG [Suspect]
     Indication: DIABETES MELLITUS
     Dosage: 10 MG ORAL
     Route: 048
     Dates: start: 20041215, end: 20050217
  3. ENALAPRIL 10 MG [Suspect]
     Indication: HYPERTENSION
     Dosage: 10 MG ORAL
     Route: 048
     Dates: start: 20041215, end: 20050217

REACTIONS (1)
  - ANGIONEUROTIC OEDEMA [None]
